FAERS Safety Report 15486733 (Version 1)
Quarter: 2018Q4

REPORT INFORMATION
  Report Type: Spontaneous
  Country: TR (occurrence: TR)
  Receive Date: 20181011
  Receipt Date: 20181011
  Transmission Date: 20190205
  Serious: Yes (Other)
  Sender: FDA-Public Use
  Company Number: TR-PURDUE PHARMA-CAN-2018-0009076

PATIENT
  Age: 14 Year
  Sex: Male

DRUGS (2)
  1. NON-PMN METHYLPHENIDATE HYDROCHLORIDE [Suspect]
     Active Substance: METHYLPHENIDATE HYDROCHLORIDE
     Indication: ATTENTION DEFICIT/HYPERACTIVITY DISORDER
     Dosage: 54 MG, Q12H
     Route: 048
  2. NON-PMN METHYLPHENIDATE HYDROCHLORIDE [Suspect]
     Active Substance: METHYLPHENIDATE HYDROCHLORIDE
     Dosage: 36 MG, Q12H (EXTENDED RELEASE)
     Route: 048

REACTIONS (3)
  - Euphoric mood [Recovering/Resolving]
  - Drug tolerance [Not Recovered/Not Resolved]
  - Drug abuse [Unknown]
